FAERS Safety Report 10264383 (Version 1)
Quarter: 2014Q2

REPORT INFORMATION
  Report Type: Spontaneous
  Country: FR (occurrence: FR)
  Receive Date: 20140627
  Receipt Date: 20140627
  Transmission Date: 20141212
  Serious: Yes (Hospitalization)
  Sender: FDA-Public Use
  Company Number: FR-ROCHE-1425309

PATIENT
  Age: 61 Year
  Sex: Female

DRUGS (7)
  1. VALIUM [Suspect]
     Indication: MAJOR DEPRESSION
     Route: 048
     Dates: start: 20140524
  2. NORVIR [Suspect]
     Indication: HIV INFECTION
     Route: 048
     Dates: start: 2011
  3. PREZISTA [Suspect]
     Indication: HIV INFECTION
     Route: 048
     Dates: start: 2011
  4. TRUVADA [Suspect]
     Indication: MAJOR DEPRESSION
     Route: 048
     Dates: start: 2011, end: 201406
  5. TERCIAN [Suspect]
     Indication: MAJOR DEPRESSION
     Route: 048
     Dates: start: 20140524
  6. VENLAFAXINE [Suspect]
     Indication: MAJOR DEPRESSION
     Route: 048
     Dates: start: 20140524
  7. RISPERDAL [Suspect]
     Indication: MAJOR DEPRESSION
     Route: 048
     Dates: start: 20140524

REACTIONS (1)
  - Renal failure acute [Recovering/Resolving]
